FAERS Safety Report 20668244 (Version 2)
Quarter: 2022Q2

REPORT INFORMATION
  Report Type: Report from Study
  Country: FI (occurrence: FI)
  Receive Date: 20220404
  Receipt Date: 20220408
  Transmission Date: 20220721
  Serious: Yes (Hospitalization, Other)
  Sender: FDA-Public Use
  Company Number: FI-MYLANLABS-2022M1024045

PATIENT
  Age: 65 Year
  Sex: Male

DRUGS (6)
  1. CLOZAPINE [Suspect]
     Active Substance: CLOZAPINE
     Indication: Schizophrenia
     Dosage: 700 MILLIGRAM, QD
     Dates: end: 202203
  2. LEVOMEPROMAZINE ORION [Concomitant]
     Dosage: UNK
  3. DUTASTERIDE\TAMSULOSIN [Concomitant]
     Active Substance: DUTASTERIDE\TAMSULOSIN
     Indication: Benign prostatic hyperplasia
     Dosage: UNK
  4. OXAZEPAM [Concomitant]
     Active Substance: OXAZEPAM
     Indication: Benign prostatic hyperplasia
     Dosage: UNK UNK, PRN WHEN NEEDED
  5. OXAZEPAM [Concomitant]
     Active Substance: OXAZEPAM
     Indication: Schizophrenia
  6. Temesta [Concomitant]
     Indication: Schizophrenia
     Dosage: UNK, PRN, WHEN NEEDED

REACTIONS (7)
  - Neutropenia [Recovered/Resolved]
  - White blood cell count decreased [Recovered/Resolved]
  - Mental disorder [Unknown]
  - Infection [Unknown]
  - Neutrophil count increased [Unknown]
  - Pyrexia [Unknown]
  - C-reactive protein increased [Unknown]

NARRATIVE: CASE EVENT DATE: 20220301
